FAERS Safety Report 24310713 (Version 1)
Quarter: 2024Q3

REPORT INFORMATION
  Report Type: Spontaneous
  Country: US (occurrence: None)
  Receive Date: 20240911
  Receipt Date: 20240911
  Transmission Date: 20241017
  Serious: No
  Sender: Public
  Company Number: None

PATIENT
  Age: 71 Year

DRUGS (2)
  1. PROLIA [Suspect]
     Active Substance: DENOSUMAB
  2. FOSAMAX [Suspect]
     Active Substance: ALENDRONATE SODIUM

REACTIONS (6)
  - Arthralgia [None]
  - Back pain [None]
  - Pain in extremity [None]
  - Gait disturbance [None]
  - Pain in jaw [None]
  - Immunisation reaction [None]

NARRATIVE: CASE EVENT DATE: 20240301
